FAERS Safety Report 18933479 (Version 1)
Quarter: 2021Q1

REPORT INFORMATION
  Report Type: Spontaneous
  Country: US (occurrence: US)
  Receive Date: 20210224
  Receipt Date: 20210224
  Transmission Date: 20210420
  Serious: No
  Sender: FDA-Public Use
  Company Number: US-009507513-2102USA007126

PATIENT
  Age: 69 Year
  Sex: Female

DRUGS (3)
  1. SOMATOSTATIN [Concomitant]
     Active Substance: SOMATOSTATIN
     Indication: PANCREATIC NEUROENDOCRINE TUMOUR
     Dosage: UNK, MONTHLY
  2. TEMODAR [Suspect]
     Active Substance: TEMOZOLOMIDE
     Indication: PANCREATIC NEUROENDOCRINE TUMOUR
     Dosage: UNK
     Route: 048
  3. AMINO ACIDS (UNSPECIFIED) [Concomitant]
     Active Substance: AMINO ACIDS, SOURCE UNSPECIFIED
     Indication: RENAL DISORDER PROPHYLAXIS
     Dosage: 7?HOUR SOLUTION INFUSION

REACTIONS (1)
  - Off label use [Unknown]
